FAERS Safety Report 6329494-1 (Version None)
Quarter: 2009Q3

REPORT INFORMATION
  Report Type: 
  Country: None (occurrence: None)
  Receive Date: 20090825
  Receipt Date: 20090825
  Transmission Date: 20100115
  Serious: Yes (Hospitalization)
  Sender: FDA-Public Use
  Company Number: None

PATIENT
  Age: 29 Year
  Sex: Female

DRUGS (2)
  1. TOPROL-XL [Suspect]
     Indication: PALPITATIONS
     Dosage: 75MG QDAY PO
     Route: 048
  2. TOPROL-XL [Suspect]
     Indication: TACHYCARDIA
     Dosage: 75MG QDAY PO
     Route: 048

REACTIONS (4)
  - DIZZINESS [None]
  - FATIGUE [None]
  - HEART RATE DECREASED [None]
  - HYPOTENSION [None]
